FAERS Safety Report 16998743 (Version 1)
Quarter: 2019Q4

REPORT INFORMATION
  Report Type: Spontaneous
  Country: US (occurrence: US)
  Receive Date: 20190925
  Receipt Date: 20190925
  Transmission Date: 20200122
  Serious: Yes (Other)
  Sender: FDA-Public Use
  Company Number: None

PATIENT
  Age: 52 Year
  Sex: Female

DRUGS (11)
  1. KETOCONAZOLE. [Concomitant]
     Active Substance: KETOCONAZOLE
  2. RANITIDINE. [Concomitant]
     Active Substance: RANITIDINE
  3. CLOBETASOL [Suspect]
     Active Substance: CLOBETASOL
  4. ASPIRIN. [Concomitant]
     Active Substance: ASPIRIN
  5. OMEPRAZOLE. [Concomitant]
     Active Substance: OMEPRAZOLE
  6. ATORVASTATIN [Concomitant]
     Active Substance: ATORVASTATIN
  7. CLOPIDOGREL [Concomitant]
     Active Substance: CLOPIDOGREL BISULFATE
  8. NICOTINE. [Concomitant]
     Active Substance: NICOTINE
  9. TALTZ [Suspect]
     Active Substance: IXEKIZUMAB
     Indication: PSORIASIS
     Dosage: ?          OTHER FREQUENCY:Q4WKS;?
     Route: 058
     Dates: start: 20190830
  10. BETHAMETH [Concomitant]
  11. FLUOCIN [Concomitant]

REACTIONS (2)
  - Cerebrovascular accident [None]
  - Diarrhoea [None]

NARRATIVE: CASE EVENT DATE: 20190924
